FAERS Safety Report 6778863-4 (Version None)
Quarter: 2010Q2

REPORT INFORMATION
  Report Type: 
  Country: None (occurrence: None)
  Receive Date: 20100618
  Receipt Date: 20100609
  Transmission Date: 20101027
  Serious: Yes (Other)
  Sender: FDA-Public Use
  Company Number: US-JNJFOC-20091009164

PATIENT
  Sex: Male

DRUGS (5)
  1. LEVAQUIN [Suspect]
     Indication: SINUSITIS
     Route: 048
  2. LEVAQUIN [Suspect]
     Indication: BACTERIAL INFECTION
     Route: 048
  3. METHYLPREDNISOLONE [Suspect]
     Indication: INFLAMMATION
     Route: 065
  4. METHYLPREDNISOLONE [Suspect]
     Indication: SINUSITIS
     Route: 065
  5. METHYLPREDNISOLONE [Suspect]
     Indication: PAIN
     Route: 065

REACTIONS (3)
  - JOINT INJURY [None]
  - ROTATOR CUFF SYNDROME [None]
  - TENDON RUPTURE [None]
